FAERS Safety Report 9870546 (Version 4)
Quarter: 2014Q2

REPORT INFORMATION
  Report Type: Spontaneous
  Country: DE (occurrence: DE)
  Receive Date: 20140205
  Receipt Date: 20140411
  Transmission Date: 20141212
  Serious: Yes (Hospitalization)
  Sender: FDA-Public Use
  Company Number: DE-JNJFOC-20140118511

PATIENT
  Age: 29 Year
  Sex: Male

DRUGS (2)
  1. REMICADE [Suspect]
     Indication: CROHN^S DISEASE
     Dosage: 50. 1-1-0
     Route: 042
     Dates: start: 2004
  2. AZATHIOPRINE [Concomitant]
     Route: 065

REACTIONS (2)
  - Intervertebral disc disorder [Unknown]
  - Headache [Unknown]
